FAERS Safety Report 19240655 (Version 1)
Quarter: 2021Q2

REPORT INFORMATION
  Report Type: Spontaneous
  Country: GB (occurrence: GB)
  Receive Date: 20210511
  Receipt Date: 20210511
  Transmission Date: 20210717
  Serious: Yes (Other)
  Sender: FDA-Public Use
  Company Number: GB-ADVANZ PHARMA-202105003260

PATIENT

DRUGS (3)
  1. LEVOTHYROXINE SODIUM ANHYDROUS [Concomitant]
     Active Substance: LEVOTHYROXINE SODIUM ANHYDROUS
     Indication: ILL-DEFINED DISORDER
  2. PREDNISOLONE. [Suspect]
     Active Substance: PREDNISOLONE
     Indication: ILL-DEFINED DISORDER
     Dosage: 60 MG
     Route: 048
     Dates: start: 20190212, end: 20210426
  3. PREDNISOLONE. [Suspect]
     Active Substance: PREDNISOLONE
     Indication: GIANT CELL ARTERITIS
     Dosage: 1 MG
     Route: 048
     Dates: start: 20190212, end: 20210426

REACTIONS (5)
  - Dizziness [Recovering/Resolving]
  - Vertigo [Recovering/Resolving]
  - Psychiatric symptom [Unknown]
  - Hallucination [Recovering/Resolving]
  - Nausea [Recovering/Resolving]

NARRATIVE: CASE EVENT DATE: 20210322
